FAERS Safety Report 18987465 (Version 1)
Quarter: 2021Q1

REPORT INFORMATION
  Report Type: Spontaneous
  Country: US (occurrence: US)
  Receive Date: 20210309
  Receipt Date: 20210309
  Transmission Date: 20210420
  Serious: Yes (Death)
  Sender: FDA-Public Use
  Company Number: None

PATIENT
  Age: 92 Year
  Sex: Male
  Weight: 99 kg

DRUGS (14)
  1. COLESEVELAM HCL [Concomitant]
     Active Substance: COLESEVELAM HYDROCHLORIDE
  2. TAMSULOSIN HCL [Concomitant]
     Active Substance: TAMSULOSIN HYDROCHLORIDE
  3. FUROSEMIDE. [Concomitant]
     Active Substance: FUROSEMIDE
  4. GLYCOLAX [Concomitant]
     Active Substance: POLYETHYLENE GLYCOL 3350
  5. VITAMIN B12 [Concomitant]
     Active Substance: CYANOCOBALAMIN
  6. CALCIUM CARBONATE?VITAMIN D [Concomitant]
     Active Substance: CALCIUM CARBONATE\VITAMIN D
  7. CARDURA [Concomitant]
     Active Substance: DOXAZOSIN MESYLATE
  8. HYDROXYUREA. [Concomitant]
     Active Substance: HYDROXYUREA
  9. POTASSIUM CHLORIDE CRYS ER [Concomitant]
     Active Substance: POTASSIUM CHLORIDE
  10. HYDROXYZINE HCL [Concomitant]
     Active Substance: HYDROXYZINE HYDROCHLORIDE
  11. LISINOPRIL. [Concomitant]
     Active Substance: LISINOPRIL
  12. LEXAPRO [Concomitant]
     Active Substance: ESCITALOPRAM OXALATE
  13. ASPIRIN 81 [Concomitant]
     Active Substance: ASPIRIN
  14. ANAGRELIDE. [Suspect]
     Active Substance: ANAGRELIDE HYDROCHLORIDE
     Indication: MYELOPROLIFERATIVE NEOPLASM
     Route: 048
     Dates: start: 20200401, end: 20210305

REACTIONS (1)
  - Death [None]

NARRATIVE: CASE EVENT DATE: 20210305
